FAERS Safety Report 17444271 (Version 3)
Quarter: 2020Q2

REPORT INFORMATION
  Report Type: Spontaneous
  Country: ES (occurrence: ES)
  Receive Date: 20200221
  Receipt Date: 20200618
  Transmission Date: 20200713
  Serious: Yes (Hospitalization, Other)
  Sender: FDA-Public Use
  Company Number: ES-ELI_LILLY_AND_COMPANY-ES202002003919

PATIENT
  Age: 40 Year
  Sex: Male

DRUGS (6)
  1. DESVENLAFAXINE. [Interacting]
     Active Substance: DESVENLAFAXINE
     Indication: MAJOR DEPRESSION
     Dosage: 400 MG, DAILY
     Route: 065
  2. DULOXETINE HYDROCHLORIDE. [Suspect]
     Active Substance: DULOXETINE HYDROCHLORIDE
     Indication: MAJOR DEPRESSION
     Dosage: 60 MG, DAILY
     Route: 048
  3. METAMIZOLE [Concomitant]
     Active Substance: METAMIZOLE
     Dosage: 1725 MILLIGRAM DAILY;
     Route: 048
  4. NAPROXEN. [Interacting]
     Active Substance: NAPROXEN
     Indication: ABDOMINAL PAIN
     Dosage: 1 DOSAGE FORM (UP TO 1500MG), DAILY
     Route: 048
  5. DESVENLAFAXINE. [Interacting]
     Active Substance: DESVENLAFAXINE
     Dosage: 400 MG QD
  6. METAMIZOLE [Concomitant]
     Active Substance: METAMIZOLE
     Indication: ABDOMINAL PAIN
     Dosage: 1725 MG, DAILY
     Route: 048

REACTIONS (6)
  - Drug interaction [Unknown]
  - Abdominal pain [Recovering/Resolving]
  - Melaena [Recovering/Resolving]
  - Duodenal ulcer [Recovered/Resolved]
  - Constipation [Recovering/Resolving]
  - Gastrointestinal haemorrhage [Recovering/Resolving]
